FAERS Safety Report 8525892-6 (Version None)
Quarter: 2012Q3

REPORT INFORMATION
  Report Type: 
  Country: None (occurrence: None)
  Receive Date: 20120720
  Receipt Date: 20120711
  Transmission Date: 20120928
  Serious: Yes (Life-Threatening, Other)
  Sender: FDA-Public Use
  Company Number: IN-AMGEN-INDSP2012043557

PATIENT
  Age: 45 Year
  Sex: Female

DRUGS (2)
  1. NEUPOGEN [Suspect]
     Indication: AGRANULOCYTOSIS
     Dosage: 300 MUG, QD
  2. ARIPIPRAZOLE [Concomitant]
     Dosage: UNK

REACTIONS (2)
  - THROMBOCYTOSIS [None]
  - DEEP VEIN THROMBOSIS [None]
